FAERS Safety Report 4313567-9 (Version None)
Quarter: 2004Q1

REPORT INFORMATION
  Report Type: 
  Country: None (occurrence: None)
  Receive Date: 20040304
  Receipt Date: 20040216
  Transmission Date: 20041129
  Serious: Yes (Hospitalization)
  Sender: FDA-Public Use
  Company Number: US_990319041

PATIENT
  Sex: Male
  Weight: 77 kg

DRUGS (5)
  1. ILETIN-BEEF LENTE INSULIN (INSULIN, ANIMAL) [Suspect]
     Indication: DIABETES MELLITUS
     Dosage: 34 U/IN THE MORNING
     Dates: start: 20010101
  2. HUMULIN N [Suspect]
     Indication: DIABETES MELLITUS
  3. REGULAR INSULIN [Suspect]
     Indication: DIABETES MELLITUS
     Dosage: 20 U/IN THE MORNING
  4. HUMULIN-HUMAN UKLTRALENTE INSULIN (RDNA) (HUMAN INSU [Suspect]
     Indication: DIABETES MELLITUS
     Dosage: 32 U/DAY
     Dates: start: 19990304, end: 19990304
  5. NPH ILETIN I (BEEF-PORK) [Suspect]
     Indication: DIABETES MELLITUS
     Dates: start: 19550101

REACTIONS (3)
  - BLOOD GLUCOSE INCREASED [None]
  - DRUG INEFFECTIVE [None]
  - SURGERY [None]
